FAERS Safety Report 25251279 (Version 1)
Quarter: 2025Q2

REPORT INFORMATION
  Report Type: Spontaneous
  Country: US (occurrence: None)
  Receive Date: 20250428
  Receipt Date: 20250428
  Transmission Date: 20250717
  Serious: Yes (Other)
  Sender: FDA-CTU
  Company Number: None

PATIENT
  Sex: Female

DRUGS (11)
  1. MYCOPHENOLIC ACID [Suspect]
     Active Substance: MYCOPHENOLIC ACID
     Indication: Renal transplant
     Dosage: FREQUENCY : TWICE A DAY;?
     Route: 048
     Dates: start: 20190531
  2. ACARBOSE [Concomitant]
     Active Substance: ACARBOSE
  3. ACARBOSE TAB 50MG [Concomitant]
  4. AMLODIPINE [Concomitant]
     Active Substance: AMLODIPINE BESYLATE
  5. CALCITRIOL CAP 0.5MCG [Concomitant]
  6. CLONIDINE TAB 0.2MG [Concomitant]
  7. ESCITALOPRAM TAB 5MG [Concomitant]
  8. FOLIC ACID TAB 1MG [Concomitant]
  9. HYDROXYZ PAM CAP 25MG [Concomitant]
  10. METHYLPRED TAB4MG [Concomitant]
  11. METOPROL TAR TAB 50MG [Concomitant]

REACTIONS (1)
  - Headache [None]
